FAERS Safety Report 15237037 (Version 2)
Quarter: 2019Q3

REPORT INFORMATION
  Report Type: Spontaneous
  Country: US (occurrence: US)
  Receive Date: 20180803
  Receipt Date: 20190806
  Transmission Date: 20191004
  Serious: No
  Sender: FDA-Public Use
  Company Number: US-SA-2018SA208820

PATIENT
  Age: 54 Year
  Sex: Female
  Weight: 77.11 kg

DRUGS (21)
  1. SOLU-CORTEF [Concomitant]
     Active Substance: HYDROCORTISONE SODIUM SUCCINATE
     Indication: ANAPHYLACTIC REACTION
     Dosage: 100 MG, PRN
     Route: 042
     Dates: start: 20180702
  2. ASPIRIN [ACETYLSALICYLIC ACID] [Concomitant]
     Active Substance: ASPIRIN
     Dosage: 1 DF, QD
     Route: 048
     Dates: start: 20160518
  3. SODIUM CHLORIDE. [Concomitant]
     Active Substance: SODIUM CHLORIDE
     Dosage: 0.9 %, AS DIRECTED
     Route: 042
     Dates: start: 20180702
  4. STERILE WATER [Concomitant]
     Active Substance: WATER
     Indication: UNEVALUABLE EVENT
     Dosage: 1 DF, AS DIRECTED
     Route: 042
     Dates: start: 20180702
  5. VITAMIN C [Concomitant]
     Active Substance: ASCORBIC ACID
     Dosage: 1 DF, QD AS DIRECTED
     Route: 048
     Dates: start: 20190220
  6. CEREZYME [Suspect]
     Active Substance: IMIGLUCERASE
     Dosage: 3600 IU, QOW
     Route: 041
     Dates: start: 20190612
  7. DIPHENHYDRAMINE. [Concomitant]
     Active Substance: DIPHENHYDRAMINE
     Dosage: 25, PRN
     Route: 042
     Dates: start: 20190612
  8. NORMAL SALINE [Concomitant]
     Active Substance: SODIUM CHLORIDE
     Dosage: 0.9 %, AS DIRECTED
     Route: 042
     Dates: start: 20180702
  9. NEXIUM I.V. [Concomitant]
     Active Substance: ESOMEPRAZOLE SODIUM
     Dosage: 40 MG, QD
     Route: 048
     Dates: start: 20160518
  10. DIPHENHYDRAMINE. [Concomitant]
     Active Substance: DIPHENHYDRAMINE
     Indication: ANAPHYLACTIC REACTION
     Dosage: 25 MG, PRN
     Route: 042
     Dates: start: 20180702
  11. NORMAL SALINE [Concomitant]
     Active Substance: SODIUM CHLORIDE
     Dosage: 0.9 %, AS DIRECTED
     Route: 042
     Dates: start: 20190612
  12. EPINEPHRINE. [Concomitant]
     Active Substance: EPINEPHRINE
     Indication: ANAPHYLACTIC REACTION
     Dosage: 0.3 MG, PRN
     Route: 030
     Dates: start: 20180702
  13. STERILE WATER [Concomitant]
     Active Substance: WATER
     Dosage: 1 DF, AS DIRECTED
     Dates: start: 20190612
  14. CRANBERRY EXTRACT [VACCINIUM MACROCARPON] [Concomitant]
     Dosage: 1 DF, AS DIRECTED
     Route: 048
     Dates: start: 20180426
  15. CEREZYME [Suspect]
     Active Substance: IMIGLUCERASE
     Indication: FABRY^S DISEASE
     Dosage: 3600 UN, QOW
     Route: 041
     Dates: start: 20160518
  16. SODIUM CHLORIDE. [Concomitant]
     Active Substance: SODIUM CHLORIDE
     Dosage: 0.9 %, AS DIRECTED
     Route: 042
     Dates: start: 20190612
  17. EPINEPHRINE. [Concomitant]
     Active Substance: EPINEPHRINE
     Dosage: 0.3 MG, PRN
     Route: 030
     Dates: start: 20190612
  18. VITAMIN D3 [Concomitant]
     Active Substance: CHOLECALCIFEROL
     Dosage: 1 DF, QD
     Route: 048
     Dates: start: 20160518
  19. SOLU-CORTEF [Concomitant]
     Active Substance: HYDROCORTISONE SODIUM SUCCINATE
     Dosage: 100 MG, PRN
     Route: 042
     Dates: start: 20190612
  20. CIPRO [Concomitant]
     Active Substance: CIPROFLOXACIN HYDROCHLORIDE
     Dosage: 1 DF, BID
     Route: 048
     Dates: start: 20180220
  21. METHENAMINE MANDELATE. [Concomitant]
     Active Substance: METHENAMINE MANDELATE
     Dosage: 1 DF, AS NEEDED AS DIRECTED
     Route: 048
     Dates: start: 20190125

REACTIONS (2)
  - Urinary tract infection [Unknown]
  - Infection [Unknown]
